FAERS Safety Report 5376042-9 (Version None)
Quarter: 2007Q2

REPORT INFORMATION
  Report Type: 
  Country: None (occurrence: None)
  Receive Date: 20070628
  Receipt Date: 20070613
  Transmission Date: 20071010
  Serious: Yes (Hospitalization)
  Sender: FDA-Public Use
  Company Number: S06-FRA-05061-01

PATIENT
  Age: 79 Year
  Sex: Female

DRUGS (7)
  1. CITALOPRAM HYDROBROMIDE [Suspect]
     Dosage: 10 MG QD PO
     Route: 048
     Dates: start: 20060720, end: 20060829
  2. HALDOL SOLUTAB [Suspect]
     Dosage: 0.25 MG QD PO
     Route: 048
     Dates: start: 20060822, end: 20060829
  3. HALDOL SOLUTAB [Suspect]
  4. GALANTAMINE HYDROBROMIDE [Concomitant]
  5. EBIXA (MEMANTINE) [Concomitant]
  6. FENOFIBRATE [Concomitant]
  7. LEVOTHYROX (LEVOTHYROXINE) [Concomitant]

REACTIONS (4)
  - ALANINE AMINOTRANSFERASE INCREASED [None]
  - ASPARTATE AMINOTRANSFERASE INCREASED [None]
  - CONFUSIONAL STATE [None]
  - DISORIENTATION [None]
